FAERS Safety Report 18260099 (Version 3)
Quarter: 2022Q3

REPORT INFORMATION
  Report Type: Report from Study
  Country: DE (occurrence: DE)
  Receive Date: 20200913
  Receipt Date: 20220720
  Transmission Date: 20221027
  Serious: Yes (Disabling, Other)
  Sender: FDA-Public Use
  Company Number: NVSC2020DE247723

PATIENT
  Age: 36 Year
  Sex: Male
  Weight: 95 kg

DRUGS (5)
  1. COSENTYX [Suspect]
     Active Substance: SECUKINUMAB
     Indication: Psoriasis
     Dosage: 300 MG
     Route: 058
     Dates: start: 20150904
  2. CEFUROXIME [Concomitant]
     Active Substance: CEFUROXIME
     Indication: Product used for unknown indication
     Dosage: 500 MG (FOR 6 DAYS)
     Route: 065
     Dates: start: 20210330
  3. CEFUROXIME [Concomitant]
     Active Substance: CEFUROXIME
     Dosage: 500 MG (FOR 6 DAYS)
     Route: 065
     Dates: start: 20210426
  4. DOXYCYCLINE [Concomitant]
     Active Substance: DOXYCYCLINE
     Indication: Product used for unknown indication
     Dosage: 100 MG (FOR 10 DAYS)
     Route: 065
     Dates: start: 20200907, end: 20200917
  5. AMOXICILLIN [Concomitant]
     Active Substance: AMOXICILLIN
     Indication: Product used for unknown indication
     Dosage: UNK
     Route: 065
     Dates: start: 202103, end: 20210307

REACTIONS (3)
  - Subcutaneous abscess [Not Recovered/Not Resolved]
  - Staphylococcal infection [Recovered/Resolved]
  - Beta haemolytic streptococcal infection [Recovered/Resolved]

NARRATIVE: CASE EVENT DATE: 20200905
